FAERS Safety Report 22065114 (Version 1)
Quarter: 2023Q1

REPORT INFORMATION
  Report Type: Spontaneous
  Country: GB (occurrence: GB)
  Receive Date: 20230306
  Receipt Date: 20230306
  Transmission Date: 20230418
  Serious: Yes (Disabling)
  Sender: FDA-Public Use
  Company Number: GB-MHRA-MED-202302231414271320-GVCKD

PATIENT
  Age: 50 Year
  Sex: Female
  Weight: 83 kg

DRUGS (1)
  1. CIPROFLOXACIN [Suspect]
     Active Substance: CIPROFLOXACIN
     Dosage: UNK
     Dates: start: 20210116, end: 20210118

REACTIONS (9)
  - Fatigue [Unknown]
  - Medication error [Unknown]
  - Nausea [Not Recovered/Not Resolved]
  - Retching [None]
  - Anxiety [None]
  - Tinnitus [None]
  - Insomnia [None]
  - Muscle twitching [None]
  - Neuralgia [None]

NARRATIVE: CASE EVENT DATE: 20210116
